FAERS Safety Report 7010371-8 (Version None)
Quarter: 2010Q3

REPORT INFORMATION
  Report Type: 
  Country: None (occurrence: None)
  Receive Date: 20100923
  Receipt Date: 20100912
  Transmission Date: 20110219
  Serious: Yes (Hospitalization)
  Sender: FDA-Public Use
  Company Number: US-JNJCH-2010021166

PATIENT
  Sex: Male
  Weight: 77.1 kg

DRUGS (1)
  1. BENADRYL [Suspect]
     Indication: SLEEP DISORDER
     Dosage: TEXT:TWO KAPGELS EVERY 4-6 HOURS
     Route: 048
     Dates: start: 20100907, end: 20100910

REACTIONS (2)
  - OFF LABEL USE [None]
  - RASH [None]
